FAERS Safety Report 6746483-3 (Version None)
Quarter: 2010Q2

REPORT INFORMATION
  Report Type: 
  Country: None (occurrence: None)
  Receive Date: 20100528
  Receipt Date: 20100107
  Transmission Date: 20101027
  Serious: No
  Sender: FDA-Public Use
  Company Number: US-ASTRAZENECA-2010SE01486

PATIENT
  Age: 36 Year
  Sex: Male

DRUGS (2)
  1. PRILOSEC OTC [Suspect]
     Route: 048
  2. NOT SPECIFIED [Concomitant]

REACTIONS (4)
  - APHAGIA [None]
  - DIARRHOEA [None]
  - ERUCTATION [None]
  - VERTIGO [None]
